FAERS Safety Report 13058771 (Version 1)
Quarter: 2016Q4

REPORT INFORMATION
  Report Type: Report from Study
  Country: VE (occurrence: VE)
  Receive Date: 20161223
  Receipt Date: 20161223
  Transmission Date: 20170207
  Serious: Yes (Other)
  Sender: FDA-Public Use
  Company Number: PHHY2016VE176011

PATIENT
  Sex: Female

DRUGS (1)
  1. GILENYA [Suspect]
     Active Substance: FINGOLIMOD HYDROCHLORIDE
     Indication: PRODUCT USED FOR UNKNOWN INDICATION
     Dosage: UNK
     Route: 065
     Dates: start: 20150626

REACTIONS (14)
  - Multiple sclerosis relapse [Unknown]
  - Palpitations [Unknown]
  - Migraine [Unknown]
  - Asthenia [Unknown]
  - Brain injury [Unknown]
  - Dengue fever [Unknown]
  - Temperature intolerance [Unknown]
  - Platelet count decreased [Unknown]
  - Skin injury [Unknown]
  - Headache [Unknown]
  - Sleep disorder [Unknown]
  - Chikungunya virus infection [Unknown]
  - Pyrexia [Unknown]
  - Gait disturbance [Unknown]
